FAERS Safety Report 8292298 (Version 2)
Quarter: 2012Q4

REPORT INFORMATION
  Report Type: 
  Country: US (occurrence: US)
  Receive Date: 20111215
  Receipt Date: 20121205
  Transmission Date: 20130627
  Serious: Yes (Hospitalization)
  Sender: FDA-Public Use
  Company Number: US-BAYER-2011-117420

PATIENT
  Age: 20 Year
  Sex: Female
  Weight: 68.03 kg

DRUGS (5)
  1. YAZ [Suspect]
     Indication: ACNE
     Dosage: UNK
     Route: 048
     Dates: start: 2008, end: 2010
  2. VYVANSE [Concomitant]
     Indication: ADD
     Dosage: UNK
     Dates: start: 2008
  3. MUSOCRIL [Concomitant]
     Dosage: UNK
     Dates: start: 20101013
  4. ADVIL [Concomitant]
     Dosage: UNK
     Dates: start: 201008, end: 20101021
  5. INDOCIN [Concomitant]

REACTIONS (3)
  - Pulmonary embolism [None]
  - Deep vein thrombosis [None]
  - Off label use [None]
